FAERS Safety Report 23130386 (Version 1)
Quarter: 2023Q4

REPORT INFORMATION
  Report Type: Spontaneous
  Country: ES (occurrence: ES)
  Receive Date: 20231031
  Receipt Date: 20231031
  Transmission Date: 20240110
  Serious: Yes (Death, Hospitalization, Other)
  Sender: FDA-Public Use
  Company Number: ES-JNJFOC-20230841241

PATIENT
  Age: 79 Year
  Sex: Male
  Weight: 105 kg

DRUGS (2)
  1. BORTEZOMIB [Suspect]
     Active Substance: BORTEZOMIB
     Indication: Plasma cell myeloma
     Dosage: 1.3 MILLIGRAM/SQ. METER, EVERY WEEK
     Route: 058
     Dates: start: 20200124, end: 20230720
  2. DARATUMUMAB [Suspect]
     Active Substance: DARATUMUMAB
     Indication: Plasma cell myeloma
     Dosage: 1800 MILLIGRAM (EVERY MONTH)
     Route: 058
     Dates: start: 20200124

REACTIONS (1)
  - Urosepsis [Fatal]

NARRATIVE: CASE EVENT DATE: 20230725
